FAERS Safety Report 17677999 (Version 2)
Quarter: 2020Q2

REPORT INFORMATION
  Report Type: Report from Study
  Country: US (occurrence: US)
  Receive Date: 20200416
  Receipt Date: 20200423
  Transmission Date: 20200714
  Serious: Yes (Hospitalization)
  Sender: FDA-Public Use
  Company Number: US-BRISTOL-MYERS SQUIBB COMPANY-BMS-2020-020111

PATIENT
  Age: 78 Year
  Sex: Male
  Weight: 84.08 kg

DRUGS (12)
  1. PRESERVISION AREDS [Concomitant]
     Active Substance: MINERALS\VITAMINS
     Indication: SUPPLEMENTATION THERAPY
     Dosage: 14320 INTERNATIONAL UNIT, QD
     Route: 048
     Dates: start: 2017
  2. TYLENOL [Concomitant]
     Active Substance: ACETAMINOPHEN
     Indication: ANALGESIC THERAPY
     Dosage: 650 MG,AS REQUIRED
     Route: 048
     Dates: start: 20191120
  3. AFRIN [OXYMETAZOLINE] [Concomitant]
     Indication: EPISTAXIS
     Dosage: 1 SPRAY (1 DOSAGE FORMS,AS REQUIRED)
     Dates: start: 20190925
  4. NIVOLUMAB [Suspect]
     Active Substance: NIVOLUMAB
     Indication: MALIGNANT MELANOMA
     Dosage: 240 MILLIGRAM, Q2WK
     Route: 042
     Dates: start: 20191203, end: 20200211
  5. LISINOPRIL. [Concomitant]
     Active Substance: LISINOPRIL
     Indication: HYPERTENSION
     Dosage: 20 MILLIGRAM, QD
     Route: 048
     Dates: start: 1999
  6. GLIPIZIDE. [Concomitant]
     Active Substance: GLIPIZIDE
     Indication: DIABETES MELLITUS
     Dosage: 2.5 MILLIGRAM, QD
     Route: 048
     Dates: start: 2017
  7. SIMVASTATIN. [Concomitant]
     Active Substance: SIMVASTATIN
     Indication: BLOOD CHOLESTEROL INCREASED
     Dosage: 20 MILLIGRAM, QD
     Route: 048
     Dates: start: 1999
  8. RP1 [Suspect]
     Active Substance: SERINE/THREONINE-PROTEIN KINASE 19
     Indication: PRODUCT USED FOR UNKNOWN INDICATION
     Dosage: 1X10^7 PFU/ML (1 IN 2 WK)
     Route: 036
     Dates: start: 20191230, end: 20191230
  9. ASPIRIN [ACETYLSALICYLIC ACID] [Concomitant]
     Active Substance: ASPIRIN
     Indication: CEREBROVASCULAR ACCIDENT
     Dosage: 81 MILLIGRAM, QD
     Route: 048
     Dates: start: 1999
  10. RP1 [Suspect]
     Active Substance: SERINE/THREONINE-PROTEIN KINASE 19
     Indication: MALIGNANT MELANOMA
     Dosage: 1X10^6 PFU/ML (1 IN 2 WK)
     Route: 036
     Dates: start: 20191119, end: 20191119
  11. MIRALAX [Concomitant]
     Active Substance: POLYETHYLENE GLYCOL 3350
     Indication: CONSTIPATION
     Dosage: 17 GRAM, QD
     Route: 048
     Dates: start: 20191230
  12. HCTZ [Concomitant]
     Active Substance: HYDROCHLOROTHIAZIDE
     Indication: HYPERTENSION
     Dosage: 25 MG/ML QD
     Route: 048
     Dates: start: 1999

REACTIONS (1)
  - Vertigo [Recovering/Resolving]

NARRATIVE: CASE EVENT DATE: 20200224
